FAERS Safety Report 13408454 (Version 15)
Quarter: 2020Q4

REPORT INFORMATION
  Report Type: Spontaneous
  Country: US (occurrence: US)
  Receive Date: 20170406
  Receipt Date: 20201224
  Transmission Date: 20210113
  Serious: Yes (Other)
  Sender: FDA-Public Use
  Company Number: US-JNJFOC-20170211872

PATIENT
  Age: 34 Year
  Sex: Male
  Weight: 68.1 kg

DRUGS (51)
  1. RISPERDAL CONSTA [Suspect]
     Active Substance: RISPERIDONE
  2. RISPERDAL CONSTA [Suspect]
     Active Substance: RISPERIDONE
  3. RISPERDAL CONSTA [Suspect]
     Active Substance: RISPERIDONE
  4. RISPERDAL CONSTA [Suspect]
     Active Substance: RISPERIDONE
  5. RISPERDAL CONSTA [Suspect]
     Active Substance: RISPERIDONE
  6. RISPERDAL CONSTA [Suspect]
     Active Substance: RISPERIDONE
  7. RISPERDAL CONSTA [Suspect]
     Active Substance: RISPERIDONE
  8. INVEGA SUSTENNA [Suspect]
     Active Substance: PALIPERIDONE PALMITATE
  9. RISPERDAL CONSTA [Suspect]
     Active Substance: RISPERIDONE
     Indication: BIPOLAR DISORDER
  10. RISPERDAL CONSTA [Suspect]
     Active Substance: RISPERIDONE
  11. RISPERDAL CONSTA [Suspect]
     Active Substance: RISPERIDONE
     Indication: BIPOLAR DISORDER
  12. RISPERDAL CONSTA [Suspect]
     Active Substance: RISPERIDONE
  13. RISPERDAL CONSTA [Suspect]
     Active Substance: RISPERIDONE
  14. RISPERDAL CONSTA [Suspect]
     Active Substance: RISPERIDONE
  15. RISPERDAL CONSTA [Suspect]
     Active Substance: RISPERIDONE
  16. RISPERDAL CONSTA [Suspect]
     Active Substance: RISPERIDONE
     Indication: SCHIZOPHRENIA
     Route: 030
     Dates: start: 2016
  17. RISPERDAL CONSTA [Suspect]
     Active Substance: RISPERIDONE
  18. RISPERDAL CONSTA [Suspect]
     Active Substance: RISPERIDONE
  19. RISPERDAL CONSTA [Suspect]
     Active Substance: RISPERIDONE
  20. RISPERDAL CONSTA [Suspect]
     Active Substance: RISPERIDONE
  21. RISPERDAL CONSTA [Suspect]
     Active Substance: RISPERIDONE
     Indication: BIPOLAR DISORDER
     Route: 030
     Dates: start: 2016
  22. INVEGA SUSTENNA [Suspect]
     Active Substance: PALIPERIDONE PALMITATE
  23. INVEGA SUSTENNA [Suspect]
     Active Substance: PALIPERIDONE PALMITATE
  24. RISPERDAL CONSTA [Suspect]
     Active Substance: RISPERIDONE
  25. RISPERDAL CONSTA [Suspect]
     Active Substance: RISPERIDONE
  26. RISPERDAL CONSTA [Suspect]
     Active Substance: RISPERIDONE
  27. RISPERDAL CONSTA [Suspect]
     Active Substance: RISPERIDONE
  28. INVEGA SUSTENNA [Suspect]
     Active Substance: PALIPERIDONE PALMITATE
  29. INVEGA SUSTENNA [Suspect]
     Active Substance: PALIPERIDONE PALMITATE
  30. OXYCODONE [Concomitant]
     Active Substance: OXYCODONE
     Indication: PRODUCT USED FOR UNKNOWN INDICATION
     Route: 065
  31. RISPERDAL CONSTA [Suspect]
     Active Substance: RISPERIDONE
     Indication: SCHIZOPHRENIA
     Route: 030
  32. RISPERDAL CONSTA [Suspect]
     Active Substance: RISPERIDONE
  33. RISPERDAL CONSTA [Suspect]
     Active Substance: RISPERIDONE
  34. INVEGA SUSTENNA [Suspect]
     Active Substance: PALIPERIDONE PALMITATE
  35. INVEGA SUSTENNA [Suspect]
     Active Substance: PALIPERIDONE PALMITATE
  36. KLONOPIN [Concomitant]
     Active Substance: CLONAZEPAM
     Indication: PRODUCT USED FOR UNKNOWN INDICATION
     Route: 065
  37. RISPERDAL CONSTA [Suspect]
     Active Substance: RISPERIDONE
  38. RISPERDAL CONSTA [Suspect]
     Active Substance: RISPERIDONE
  39. RISPERDAL CONSTA [Suspect]
     Active Substance: RISPERIDONE
  40. RISPERDAL CONSTA [Suspect]
     Active Substance: RISPERIDONE
  41. RISPERDAL CONSTA [Suspect]
     Active Substance: RISPERIDONE
  42. INVEGA SUSTENNA [Suspect]
     Active Substance: PALIPERIDONE PALMITATE
     Indication: SCHIZOPHRENIA
     Route: 030
     Dates: start: 2014
  43. INVEGA SUSTENNA [Suspect]
     Active Substance: PALIPERIDONE PALMITATE
  44. INVEGA SUSTENNA [Suspect]
     Active Substance: PALIPERIDONE PALMITATE
  45. RISPERDAL CONSTA [Suspect]
     Active Substance: RISPERIDONE
  46. RISPERDAL CONSTA [Suspect]
     Active Substance: RISPERIDONE
     Indication: SCHIZOPHRENIA
     Route: 030
     Dates: start: 2016
  47. RISPERDAL CONSTA [Suspect]
     Active Substance: RISPERIDONE
  48. INVEGA SUSTENNA [Suspect]
     Active Substance: PALIPERIDONE PALMITATE
  49. INVEGA SUSTENNA [Suspect]
     Active Substance: PALIPERIDONE PALMITATE
  50. ADDERALL [Concomitant]
     Active Substance: AMPHETAMINE ASPARTATE\AMPHETAMINE SULFATE\DEXTROAMPHETAMINE SACCHARATE\DEXTROAMPHETAMINE SULFATE
     Indication: PRODUCT USED FOR UNKNOWN INDICATION
     Route: 065
  51. RISPERDAL CONSTA [Suspect]
     Active Substance: RISPERIDONE

REACTIONS (21)
  - Product dose omission issue [Unknown]
  - Device leakage [Unknown]
  - Wrong technique in product usage process [Unknown]
  - Injection site pain [Unknown]
  - Skin laceration [Unknown]
  - Needle issue [Unknown]
  - Off label use [Unknown]
  - Loss of personal independence in daily activities [Unknown]
  - Disturbance in attention [Unknown]
  - Thinking abnormal [Unknown]
  - Treatment noncompliance [Unknown]
  - Needle issue [Unknown]
  - Post-traumatic stress disorder [Unknown]
  - Road traffic accident [Unknown]
  - Product administration error [Unknown]
  - Exercise tolerance decreased [Unknown]
  - Duplicate therapy error [Unknown]
  - Product administration error [Unknown]
  - Product complaint [Unknown]
  - Complication associated with device [Unknown]
  - Multiple fractures [Unknown]

NARRATIVE: CASE EVENT DATE: 2014
